FAERS Safety Report 6854264-5 (Version None)
Quarter: 2010Q3

REPORT INFORMATION
  Report Type: 
  Country: None (occurrence: None)
  Receive Date: 20100717
  Receipt Date: 20071231
  Transmission Date: 20110219
  Serious: No
  Sender: FDA-Public Use
  Company Number: US-PFIZER INC-2008001011

PATIENT
  Sex: Male
  Weight: 112.5 kg

DRUGS (6)
  1. CHANTIX [Suspect]
     Indication: SMOKING CESSATION THERAPY
     Dates: start: 20071201
  2. ANTIHYPERTENSIVES [Concomitant]
  3. LIPITOR [Concomitant]
  4. ALTACE [Concomitant]
  5. TOPROL-XL [Concomitant]
  6. IBUPROFEN [Concomitant]

REACTIONS (3)
  - FEELING ABNORMAL [None]
  - HEADACHE [None]
  - MYALGIA [None]
